FAERS Safety Report 7642046-6 (Version None)
Quarter: 2011Q3

REPORT INFORMATION
  Report Type: 
  Country: None (occurrence: None)
  Receive Date: 20110727
  Receipt Date: 20110727
  Transmission Date: 20111222
  Serious: Yes (Other)
  Sender: FDA-Public Use
  Company Number: None

PATIENT
  Age: 47 Year
  Sex: Female
  Weight: 105.2345 kg

DRUGS (3)
  1. TOPIRAMATE [Suspect]
     Indication: MIGRAINE
     Dosage: 25MG BID ORAL
     Route: 048
     Dates: start: 20110427, end: 20110707
  2. LEVOTHYROXINE SODIUM [Concomitant]
  3. VITAMIN D [Concomitant]

REACTIONS (3)
  - MARITAL PROBLEM [None]
  - PERSONALITY CHANGE [None]
  - SEXUAL RELATIONSHIP CHANGE [None]
